FAERS Safety Report 7728646-3 (Version None)
Quarter: 2011Q3

REPORT INFORMATION
  Report Type: 
  Country: None (occurrence: None)
  Receive Date: 20110831
  Receipt Date: 20110824
  Transmission Date: 20111222
  Serious: Yes (Other)
  Sender: FDA-Public Use
  Company Number: TPA2011A04498

PATIENT
  Age: 7 Decade
  Sex: Male
  Weight: 125.6464 kg

DRUGS (1)
  1. ACTOS [Suspect]
     Indication: DIABETES MELLITUS
     Dosage: 45 MG, 1 IN 1 D
     Dates: end: 20110701

REACTIONS (1)
  - BLADDER CANCER [None]
